FAERS Safety Report 9374710 (Version 1)
Quarter: 2013Q2

REPORT INFORMATION
  Report Type: Spontaneous
  Country: ES (occurrence: ES)
  Receive Date: 20130628
  Receipt Date: 20130628
  Transmission Date: 20140414
  Serious: Yes (Hospitalization, Other)
  Sender: FDA-Public Use
  Company Number: ES-SUN PHARMACEUTICAL INDUSTRIES LTD-2013SUN00858

PATIENT
  Age: 43 Year
  Sex: Male

DRUGS (4)
  1. OLANZAPINA TEVA [Suspect]
     Indication: PSYCHOTIC DISORDER
     Dosage: 10 MG, DAY
     Route: 065
  2. OLANZAPINA TEVA [Suspect]
     Dosage: 5 MG, QD
     Route: 065
  3. ESCITALOPRAM [Concomitant]
     Indication: DEPRESSION
     Dosage: 10 MG PER DAY
     Route: 065
  4. DIAZEPAM [Concomitant]
     Indication: ANXIETY
     Dosage: 5 MG, TID

REACTIONS (4)
  - Hypernatraemia [Recovered/Resolved]
  - Neuroleptic malignant syndrome [Recovering/Resolving]
  - Parkinsonism [Recovered/Resolved]
  - Dysphagia [Recovered/Resolved]
